FAERS Safety Report 16933247 (Version 1)
Quarter: 2019Q4

REPORT INFORMATION
  Report Type: Spontaneous
  Country: JP (occurrence: JP)
  Receive Date: 20191018
  Receipt Date: 20191018
  Transmission Date: 20200122
  Serious: Yes (Hospitalization, Other)
  Sender: FDA-Public Use
  Company Number: JP-GLAXOSMITHKLINE-JP2019JPN187248

PATIENT
  Age: 79 Year
  Sex: Male
  Weight: 50 kg

DRUGS (9)
  1. ORKEDIA [Concomitant]
     Dosage: UNK
  2. TSUMURA DAIOKANZOTO [Concomitant]
     Dosage: UNK
  3. CALTAN [Concomitant]
     Active Substance: CALCIUM CARBONATE
     Dosage: UNK
  4. TARLIGE [Suspect]
     Active Substance: MIROGABALIN BESYLATE
     Indication: HERPES ZOSTER
     Dosage: 5 MG, BID
     Route: 048
     Dates: start: 20191009, end: 20191009
  5. P-TOL [Concomitant]
     Active Substance: FERRIC OXYHYDROXIDE
     Dosage: UNK
  6. PLAVIX TABLET [Concomitant]
     Dosage: UNK
  7. VALACICLOVIR HYDROCHLORIDE [Suspect]
     Active Substance: VALACYCLOVIR HYDROCHLORIDE
     Indication: HERPES ZOSTER
     Dosage: 500 MG, BID
     Route: 048
     Dates: start: 20191009, end: 20191009
  8. PARIET TABLET [Concomitant]
     Dosage: UNK
  9. LASIX [Concomitant]
     Active Substance: FUROSEMIDE
     Dosage: UNK

REACTIONS (6)
  - Dizziness [Unknown]
  - Altered state of consciousness [Recovering/Resolving]
  - Prescribed overdose [Unknown]
  - Inappropriate schedule of product administration [Unknown]
  - Toxic encephalopathy [Recovering/Resolving]
  - Dysarthria [Unknown]

NARRATIVE: CASE EVENT DATE: 20191009
